FAERS Safety Report 7802528-0 (Version None)
Quarter: 2011Q4

REPORT INFORMATION
  Report Type: 
  Country: None (occurrence: None)
  Receive Date: 20111007
  Receipt Date: 20110930
  Transmission Date: 20120403
  Serious: Yes (Hospitalization)
  Sender: FDA-Public Use
  Company Number: US-AMGEN-USASP2011050724

PATIENT
  Age: 46 Year
  Sex: Female

DRUGS (1)
  1. ENBREL [Suspect]
     Indication: RHEUMATOID ARTHRITIS
     Dosage: 25 MG, QWK
     Dates: start: 20041001, end: 20050401

REACTIONS (4)
  - RHEUMATOID ARTHRITIS [None]
  - CHOLECYSTECTOMY [None]
  - SPINAL LAMINECTOMY [None]
  - INTERVERTEBRAL DISC OPERATION [None]
